FAERS Safety Report 21608952 (Version 1)
Quarter: 2022Q4

REPORT INFORMATION
  Report Type: Spontaneous
  Country: IT (occurrence: IT)
  Receive Date: 20221117
  Receipt Date: 20221117
  Transmission Date: 20230112
  Serious: Yes (Life-Threatening)
  Sender: FDA-Public Use
  Company Number: None

PATIENT

DRUGS (1)
  1. ONCASPAR [Suspect]
     Active Substance: PEGASPARGASE
     Indication: Acute lymphocytic leukaemia
     Dosage: DOSAGE SET: 1325 UI, BUT THE INFUSION HAS NOT BEEN COMPLETED
     Route: 042
     Dates: start: 20221109, end: 20221109

REACTIONS (6)
  - Respiratory depression [Recovered/Resolved]
  - Bronchospasm [Unknown]
  - Skin irritation [Unknown]
  - Cough [Unknown]
  - Oedema [Unknown]
  - Periorbital oedema [Unknown]

NARRATIVE: CASE EVENT DATE: 20221109
